FAERS Safety Report 9117708 (Version 2)
Quarter: 2013Q1

REPORT INFORMATION
  Report Type: Spontaneous
  Country: US (occurrence: US)
  Receive Date: 20130225
  Receipt Date: 20130320
  Transmission Date: 20140127
  Serious: Yes (Other)
  Sender: FDA-Public Use
  Company Number: US-BIOGENIDEC-2013BI017577

PATIENT
  Age: 50 Year
  Sex: Female

DRUGS (6)
  1. TYSABRI [Suspect]
     Indication: MULTIPLE SCLEROSIS
     Route: 042
     Dates: start: 20110627
  2. TRAZODONE [Concomitant]
  3. KLONOPIN [Concomitant]
  4. HYDROXYZINE [Concomitant]
  5. WELLBUTRIN [Concomitant]
  6. CYMBALTA [Concomitant]

REACTIONS (4)
  - Suicide attempt [Recovered/Resolved]
  - Overdose [Recovered/Resolved]
  - Back pain [Not Recovered/Not Resolved]
  - Exostosis [Not Recovered/Not Resolved]
